FAERS Safety Report 9225619 (Version 1)
Quarter: 2013Q2

REPORT INFORMATION
  Report Type: Report from Study
  Country: US (occurrence: US)
  Receive Date: 20130411
  Receipt Date: 20130411
  Transmission Date: 20140414
  Serious: Yes (Hospitalization, Other)
  Sender: FDA-Public Use
  Company Number: US-GLAXOSMITHKLINE-A1018945A

PATIENT
  Age: 18 Year
  Sex: Female
  Weight: 70.1 kg

DRUGS (17)
  1. ZOFRAN [Suspect]
  2. PROCHLORPERAZINE [Suspect]
  3. ETOPOSIDE [Suspect]
     Indication: ACUTE MYELOID LEUKAEMIA
     Dosage: 100MGM2 CYCLIC
     Route: 042
     Dates: start: 20121001, end: 20121109
  4. DIPHENHYDRAMINE [Suspect]
  5. HYDROXYZINE [Suspect]
  6. VELCADE [Suspect]
     Indication: ACUTE MYELOID LEUKAEMIA
     Dosage: 1.3MGM2 CYCLIC
     Route: 042
     Dates: start: 20121001, end: 20130110
  7. CYTARABINE [Suspect]
     Indication: ACUTE MYELOID LEUKAEMIA
     Dates: start: 20121001, end: 20130103
  8. DAUNORUBICIN [Suspect]
     Indication: ACUTE MYELOID LEUKAEMIA
     Dosage: 50MGM2 CYCLIC
     Route: 042
     Dates: start: 20121001, end: 20121005
  9. MITOXANTRONE HYDROCHLORIDE [Suspect]
     Indication: ACUTE MYELOID LEUKAEMIA
     Dosage: 12MGM2 CYCLIC
     Route: 042
     Dates: start: 20121001, end: 20130108
  10. SCOPOLAMINE [Suspect]
  11. LORAZEPAM [Suspect]
  12. SERTRALINE [Concomitant]
  13. VANCOMYCIN [Concomitant]
  14. MEROPENEM [Concomitant]
  15. GENTAMICIN [Concomitant]
  16. MICAFUNGIN [Concomitant]
  17. AMBISOME [Concomitant]

REACTIONS (3)
  - Encephalopathy [Recovered/Resolved]
  - Hypoxia [Recovered/Resolved]
  - Histiocytosis haematophagic [Recovering/Resolving]
